FAERS Safety Report 15635014 (Version 2)
Quarter: 2019Q1

REPORT INFORMATION
  Report Type: Report from Study
  Country: CA (occurrence: CA)
  Receive Date: 20181119
  Receipt Date: 20190129
  Transmission Date: 20190417
  Serious: Yes (Other)
  Sender: FDA-Public Use
  Company Number: CA-ELI_LILLY_AND_COMPANY-CA201811003899

PATIENT
  Age: 79 Year
  Sex: Male

DRUGS (5)
  1. DEXA [DEXAMETHASONE] [Concomitant]
     Indication: PREMEDICATION
     Dosage: 20 MG, UNKNOWN
     Route: 042
  2. ONDANSETRAN [Concomitant]
     Active Substance: ONDANSETRON HYDROCHLORIDE
     Indication: PREMEDICATION
     Dosage: 8 MG, UNKNOWN
     Route: 042
  3. DOXORUBICIN [Concomitant]
     Active Substance: DOXORUBICIN
     Indication: PRODUCT USED FOR UNKNOWN INDICATION
     Dosage: UNK, UNKNOWN
     Route: 065
  4. DIPHENHYDRAMINE. [Concomitant]
     Active Substance: DIPHENHYDRAMINE
     Indication: PREMEDICATION
     Dosage: 50 MG, UNKNOWN
     Route: 042
  5. OLARATUMAB [Suspect]
     Active Substance: OLARATUMAB
     Indication: SARCOMA METASTATIC
     Dosage: UNK, UNKNOWN
     Route: 065
     Dates: start: 20181102, end: 20181102

REACTIONS (3)
  - Loss of consciousness [Recovered/Resolved]
  - Infusion related reaction [Recovered/Resolved]
  - Urinary incontinence [Recovered/Resolved]

NARRATIVE: CASE EVENT DATE: 20181102
